FAERS Safety Report 6328601-4 (Version None)
Quarter: 2009Q3

REPORT INFORMATION
  Report Type: 
  Country: None (occurrence: None)
  Receive Date: 20090826
  Receipt Date: 20090819
  Transmission Date: 20100115
  Serious: Yes (Other)
  Sender: FDA-Public Use
  Company Number: US-JNJCH-2009019087

PATIENT
  Sex: Female
  Weight: 72.6 kg

DRUGS (3)
  1. LUBRIDERM DAILY UV [Suspect]
     Indication: DRUG USE FOR UNKNOWN INDICATION
     Dosage: TEXT:UNKNOWN ONE TIME
     Route: 061
     Dates: start: 20090711, end: 20090711
  2. COZAAR [Concomitant]
     Indication: HYPERTENSION
     Dosage: TEXT:25 MG (FREQUENCY UNSPECIFIED)
     Route: 065
  3. CRESTOR [Concomitant]
     Indication: BLOOD CHOLESTEROL INCREASED
     Dosage: TEXT:10 MG (FREQUENCY UNSPECIFIED)
     Route: 065

REACTIONS (7)
  - APPLICATION SITE IRRITATION [None]
  - APPLICATION SITE PAIN [None]
  - APPLICATION SITE PRURITUS [None]
  - APPLICATION SITE VESICLES [None]
  - EXPIRED DRUG ADMINISTERED [None]
  - MALAISE [None]
  - RASH ERYTHEMATOUS [None]
